FAERS Safety Report 4563742-3 (Version None)
Quarter: 2005Q1

REPORT INFORMATION
  Report Type: 
  Country: None (occurrence: None)
  Receive Date: 20050128
  Receipt Date: 20050117
  Transmission Date: 20050727
  Serious: Yes (Death, Hospitalization)
  Sender: FDA-Public Use
  Company Number: 200510754GDDC

PATIENT
  Age: 74 Year
  Sex: Male

DRUGS (1)
  1. FUROSEMIDE [Suspect]
     Indication: CARDIAC FAILURE
     Dosage: DOSE: UNK

REACTIONS (7)
  - BONE MARROW DISORDER [None]
  - CEREBRAL HAEMORRHAGE [None]
  - DRUG HYPERSENSITIVITY [None]
  - HAEMORRHAGIC DIATHESIS [None]
  - IMMUNE SYSTEM DISORDER [None]
  - PURPURA [None]
  - THROMBOCYTOPENIA [None]
